FAERS Safety Report 7544062-1 (Version None)
Quarter: 2011Q2

REPORT INFORMATION
  Report Type: 
  Country: None (occurrence: None)
  Receive Date: 20110613
  Receipt Date: 20051011
  Transmission Date: 20111010
  Serious: Yes (Death, Other)
  Sender: FDA-Public Use
  Company Number: PHHO2005CO14998

PATIENT
  Sex: Female

DRUGS (5)
  1. TRAMADOL HCL [Concomitant]
  2. AMIODARONE HCL [Concomitant]
     Dates: end: 20050601
  3. TIROXINA [Concomitant]
     Dates: end: 20050601
  4. TRILEPTAL [Suspect]
     Indication: EPILEPSY
     Dosage: 300 MG, QD
     Route: 048
     Dates: start: 20030501, end: 20050601
  5. ISOPTIN [Concomitant]
     Dates: end: 20050601

REACTIONS (1)
  - EFFUSION [None]
